FAERS Safety Report 9833419 (Version 1)
Quarter: 2014Q1

REPORT INFORMATION
  Report Type: Spontaneous
  Country: US (occurrence: US)
  Receive Date: 20140121
  Receipt Date: 20140121
  Transmission Date: 20141002
  Serious: No
  Sender: FDA-Public Use
  Company Number: US-009507513-1401USA008150

PATIENT
  Age: 44 Year
  Sex: Female

DRUGS (1)
  1. PROVENTIL [Suspect]
     Indication: BRONCHITIS
     Dosage: 2 PUFFS EVERY 6 HOURS
     Route: 055
     Dates: start: 20140110

REACTIONS (1)
  - Drug ineffective [Not Recovered/Not Resolved]
